FAERS Safety Report 5163853-8 (Version None)
Quarter: 2006Q4

REPORT INFORMATION
  Report Type: 
  Country: None (occurrence: None)
  Receive Date: 20061129
  Receipt Date: 20061129
  Transmission Date: 20070319
  Serious: Yes (Death, Hospitalization)
  Sender: FDA-Public Use
  Company Number: None

PATIENT
  Sex: Male
  Weight: 96.8 kg

DRUGS (1)
  1. TEMOZOLOMIDE [Suspect]
     Dosage: 2310 MG

REACTIONS (3)
  - LOSS OF CONSCIOUSNESS [None]
  - TUMOUR HAEMORRHAGE [None]
  - URINARY INCONTINENCE [None]
